FAERS Safety Report 6316566-0 (Version None)
Quarter: 2009Q3

REPORT INFORMATION
  Report Type: 
  Country: None (occurrence: None)
  Receive Date: 20090820
  Receipt Date: 20090805
  Transmission Date: 20100115
  Serious: Yes (Other)
  Sender: FDA-Public Use
  Company Number: PHHY2009GB31992

PATIENT
  Sex: Male

DRUGS (7)
  1. CLOZARIL [Suspect]
     Indication: SCHIZOPHRENIA
     Dosage: UNK
     Route: 048
     Dates: start: 19981203
  2. CLOZARIL [Suspect]
     Dosage: 200 MG
     Route: 048
  3. FLUOXETINE [Concomitant]
     Indication: DEPRESSION
     Dosage: 20 MG
     Route: 048
  4. LAMOTRIGINE [Concomitant]
     Dosage: 300 MG, BID
     Route: 048
  5. KEPPRA [Concomitant]
     Dosage: 750 MG, BID
     Route: 048
  6. DEXAMETHASONE [Concomitant]
     Dosage: 4 MG DAILY
     Route: 048
  7. TEMOZOLOMIDE [Concomitant]
     Indication: ASTROCYTOMA
     Dosage: 4 WEEK CYCLE

REACTIONS (4)
  - ASTROCYTOMA [None]
  - BRAIN NEOPLASM [None]
  - BRAIN OPERATION [None]
  - EPILEPSY [None]
